FAERS Safety Report 5705549-7 (Version None)
Quarter: 2008Q2

REPORT INFORMATION
  Report Type: 
  Country: None (occurrence: None)
  Receive Date: 20080415
  Receipt Date: 20080408
  Transmission Date: 20081010
  Serious: Yes (Hospitalization)
  Sender: FDA-Public Use
  Company Number: FR-BAYER-200816147GPV

PATIENT
  Age: 32 Year
  Sex: Female

DRUGS (5)
  1. ASPRO (ACETYLSALICYLIC ACID) [Suspect]
     Indication: DRUG USE FOR UNKNOWN INDICATION
     Route: 048
     Dates: end: 20070720
  2. STRESAM (!TIFOXINE ) [Suspect]
     Indication: DRUG USE FOR UNKNOWN INDICATION
     Route: 048
     Dates: end: 20070720
  3. ACETAMINOPHEN [Suspect]
     Indication: DRUG USE FOR UNKNOWN INDICATION
     Route: 048
     Dates: end: 20070720
  4. SPASMINE (HAWTHORN, JACOB'S LADDER) [Suspect]
     Indication: DRUG USE FOR UNKNOWN INDICATION
     Route: 048
     Dates: end: 20070720
  5. DAFLON (FLAVONOIQUE ACID) [Suspect]
     Indication: DRUG USE FOR UNKNOWN INDICATION
     Route: 048
     Dates: end: 20070720

REACTIONS (3)
  - ASTHENIA [None]
  - CYTOLYTIC HEPATITIS [None]
  - JAUNDICE [None]
